FAERS Safety Report 5927926-1 (Version None)
Quarter: 2008Q4

REPORT INFORMATION
  Report Type: 
  Country: None (occurrence: None)
  Receive Date: 20081023
  Receipt Date: 20081013
  Transmission Date: 20090506
  Serious: Yes (Hospitalization)
  Sender: FDA-Public Use
  Company Number: CH-AVENTIS-200819772GDDC

PATIENT
  Age: 45 Year
  Sex: Male

DRUGS (3)
  1. DOCETAXEL [Suspect]
     Route: 042
     Dates: start: 20080905, end: 20080905
  2. CISPLATIN [Suspect]
     Route: 042
     Dates: start: 20080905, end: 20080905
  3. CETUXIMAB [Suspect]
     Route: 042
     Dates: start: 20080905, end: 20080912

REACTIONS (2)
  - FEBRILE NEUTROPENIA [None]
  - SOCIAL PROBLEM [None]
